FAERS Safety Report 8025835-8 (Version None)
Quarter: 2012Q1

REPORT INFORMATION
  Report Type: 
  Country: None (occurrence: None)
  Receive Date: 20120105
  Receipt Date: 20110407
  Transmission Date: 20120608
  Serious: No
  Sender: FDA-Public Use
  Company Number: US-ABBOTT-11P-163-0715109-00

PATIENT
  Sex: Female
  Weight: 81.266 kg

DRUGS (4)
  1. SYNTHROID [Suspect]
     Indication: HYPOTHYROIDISM
     Dates: start: 20110301
  2. SYNTHROID [Suspect]
     Indication: HYPOTHYROIDISM
     Dates: start: 20000601, end: 20110301
  3. SYNTHROID [Suspect]
     Indication: NODULE
  4. HYZAAR [Concomitant]
     Indication: HYPERTENSION
     Dosage: 100/25MG 1 IN 1 D

REACTIONS (7)
  - DRUG INEFFECTIVE [None]
  - BLOOD THYROID STIMULATING HORMONE ABNORMAL [None]
  - HYPOTHYROIDISM [None]
  - MUSCLE SPASMS [None]
  - SLUGGISHNESS [None]
  - FATIGUE [None]
  - ALOPECIA [None]
